FAERS Safety Report 5611086-0 (Version None)
Quarter: 2008Q1

REPORT INFORMATION
  Report Type: 
  Country: None (occurrence: None)
  Receive Date: 20080201
  Receipt Date: 20080129
  Transmission Date: 20080703
  Serious: Yes (Hospitalization, Other)
  Sender: FDA-Public Use
  Company Number: SE-WYE-G00887408

PATIENT
  Age: 61 Year

DRUGS (2)
  1. TEMSIROLIMUS [Suspect]
     Route: 042
     Dates: start: 20071207, end: 20071225
  2. METHOTREXATE [Suspect]
     Indication: PSORIATIC ARTHROPATHY

REACTIONS (2)
  - PNEUMONIA [None]
  - SEPSIS [None]
